FAERS Safety Report 11327605 (Version 1)
Quarter: 2015Q3

REPORT INFORMATION
  Report Type: Report from Study
  Country: US (occurrence: US)
  Receive Date: 20150731
  Receipt Date: 20150731
  Transmission Date: 20151125
  Serious: Yes (Death, Other)
  Sender: FDA-Public Use
  Company Number: US-ROCHE-630142

PATIENT

DRUGS (2)
  1. PEG-INTERFERON ALFA 2A [Suspect]
     Active Substance: PEGINTERFERON ALFA-2A
     Indication: THROMBOCYTOPENIA
     Dosage: INITIAL PEG-IFN- 2A STARTING DOSE WAS 450MCG/WEEK, BUT THAT WAS MODIFIED TO THE CURRENT STARTING DOS
     Route: 058
  2. PEG-INTERFERON ALFA 2A [Suspect]
     Active Substance: PEGINTERFERON ALFA-2A
     Indication: POLYCYTHAEMIA VERA

REACTIONS (24)
  - Osmotic demyelination syndrome [Fatal]
  - Neutropenia [Unknown]
  - Anaemia [Unknown]
  - Decreased appetite [Unknown]
  - Diarrhoea [Unknown]
  - Infection [Unknown]
  - Pain [Unknown]
  - Mucosal inflammation [Unknown]
  - Confusional state [Unknown]
  - Rash pruritic [Unknown]
  - Liver function test abnormal [Unknown]
  - Cardiotoxicity [Unknown]
  - Vision blurred [Unknown]
  - Fatigue [Unknown]
  - Retinal ischaemia [Unknown]
  - Retinal infiltrates [Unknown]
  - Depression [Unknown]
  - Cardiac disorder [Fatal]
  - Pruritus [Unknown]
  - Thrombosis [Unknown]
  - Autoimmune disorder [Unknown]
  - Thrombocytopenia [Unknown]
  - Dizziness [Unknown]
  - Dyspnoea [Unknown]
